FAERS Safety Report 24126989 (Version 1)
Quarter: 2024Q3

REPORT INFORMATION
  Report Type: Spontaneous
  Country: NL (occurrence: NL)
  Receive Date: 20240723
  Receipt Date: 20240723
  Transmission Date: 20241017
  Serious: Yes (Other)
  Sender: MYLAN
  Company Number: None

PATIENT
  Age: 21 Year
  Sex: Female
  Weight: 70 kg

DRUGS (1)
  1. ISOTRETINOIN [Suspect]
     Active Substance: ISOTRETINOIN
     Indication: Acne
     Dosage: 20 MILLIGRAM, QD (CAPSULE SOFT, 1X PER DAY 1 PIECE)
     Route: 065
     Dates: start: 20231120, end: 20240526

REACTIONS (1)
  - Vulvovaginal ulceration [Recovering/Resolving]
